FAERS Safety Report 8823788 (Version 1)
Quarter: 2012Q4

REPORT INFORMATION
  Report Type: 
  Country: US (occurrence: US)
  Receive Date: 20121003
  Receipt Date: 20121003
  Transmission Date: 20130627
  Serious: No
  Sender: FDA-Public Use
  Company Number: US-009507513-1210USA001459

PATIENT
  Sex: Female

DRUGS (1)
  1. MIRALAX [Suspect]
     Indication: COLONOSCOPY
     Dosage: 238 g, Once
     Route: 048
     Dates: start: 20120103

REACTIONS (3)
  - Abdominal distension [Unknown]
  - Overdose [Unknown]
  - Off label use [Unknown]
